FAERS Safety Report 19855833 (Version 1)
Quarter: 2021Q3

REPORT INFORMATION
  Report Type: Spontaneous
  Country: US (occurrence: US)
  Receive Date: 20210920
  Receipt Date: 20210920
  Transmission Date: 20211014
  Serious: No
  Sender: FDA-Public Use
  Company Number: US-AMNEAL PHARMACEUTICALS-2021-AMRX-01261

PATIENT
  Age: 58 Year
  Sex: Female

DRUGS (11)
  1. KORLYM [Suspect]
     Active Substance: MIFEPRISTONE
     Dosage: 300 MILLIGRAM, QD
     Route: 048
     Dates: start: 202012
  2. ADVIL [Concomitant]
     Active Substance: IBUPROFEN
     Indication: PRODUCT USED FOR UNKNOWN INDICATION
     Dosage: UNK
     Route: 065
  3. KORLYM [Suspect]
     Active Substance: MIFEPRISTONE
     Indication: HYPERGLYCAEMIA
     Dosage: 600 MILLIGRAM, QD
     Route: 048
     Dates: start: 20190927, end: 20200114
  4. KORLYM [Suspect]
     Active Substance: MIFEPRISTONE
     Dosage: 900 MILLIGRAM, QD
     Route: 048
     Dates: start: 20200116, end: 202012
  5. PROBIOTIC [BIFIDOBACTERIUM INFANTIS;LACTOBACILLUS ACIDOPHILUS] [Concomitant]
     Indication: PRODUCT USED FOR UNKNOWN INDICATION
     Dosage: UNK
     Route: 065
  6. METFORMIN HYDROCHLORIDE. [Concomitant]
     Active Substance: METFORMIN HYDROCHLORIDE
     Indication: PRODUCT USED FOR UNKNOWN INDICATION
     Dosage: UNK
     Route: 065
  7. NORETHINDRONE ACETATE. [Suspect]
     Active Substance: NORETHINDRONE ACETATE
     Indication: VAGINAL HAEMORRHAGE
     Dosage: UNK
     Route: 065
     Dates: start: 20201124
  8. MELATONIN [CALCIUM;MELATONIN;PYRIDOXINE HYDROCHLORIDE] [Concomitant]
     Active Substance: CALCIUM\MELATONIN\PYRIDOXINE HYDROCHLORIDE
     Indication: PRODUCT USED FOR UNKNOWN INDICATION
     Dosage: UNK
     Route: 065
  9. KORLYM [Suspect]
     Active Substance: MIFEPRISTONE
     Indication: CUSHING^S SYNDROME
     Dosage: 300 MILLIGRAM, QD
     Route: 048
     Dates: start: 20190811, end: 20190926
  10. SPIRONOLACTONE. [Concomitant]
     Active Substance: SPIRONOLACTONE
     Indication: PRODUCT USED FOR UNKNOWN INDICATION
     Route: 065
  11. VITAMIN D [ERGOCALCIFEROL] [Concomitant]
     Active Substance: ERGOCALCIFEROL
     Indication: PRODUCT USED FOR UNKNOWN INDICATION
     Dosage: UNK
     Route: 065

REACTIONS (3)
  - Nausea [Not Recovered/Not Resolved]
  - Weight increased [Unknown]
  - Decreased appetite [Not Recovered/Not Resolved]

NARRATIVE: CASE EVENT DATE: 202012
